FAERS Safety Report 6108998-0 (Version None)
Quarter: 2009Q1

REPORT INFORMATION
  Report Type: 
  Country: None (occurrence: None)
  Receive Date: 20090310
  Receipt Date: 20090225
  Transmission Date: 20090719
  Serious: Yes (Hospitalization, Other)
  Sender: FDA-Public Use
  Company Number: US-ELI_LILLY_AND_COMPANY-US200902007507

PATIENT
  Sex: Female

DRUGS (8)
  1. FORTEO [Suspect]
     Dates: start: 20080601
  2. CELEBREX [Concomitant]
  3. LISINOPRIL [Concomitant]
  4. METHOTREXATE [Concomitant]
  5. HUMIRA [Concomitant]
  6. TUMS [Concomitant]
  7. VITAMIN D [Concomitant]
  8. BENADRYL [Concomitant]

REACTIONS (3)
  - APPENDICITIS PERFORATED [None]
  - RETCHING [None]
  - VOMITING [None]
